FAERS Safety Report 11700603 (Version 1)
Quarter: 2015Q4

REPORT INFORMATION
  Report Type: Spontaneous
  Country: US (occurrence: US)
  Receive Date: 20151105
  Receipt Date: 20151105
  Transmission Date: 20160304
  Serious: Yes (Other)
  Sender: FDA-Public Use
  Company Number: US-ASTRAZENECA-2015SF05241

PATIENT
  Age: 46 Year
  Sex: Female

DRUGS (1)
  1. SYMBICORT [Suspect]
     Active Substance: BUDESONIDE\FORMOTEROL FUMARATE DIHYDRATE
     Indication: ASTHMA
     Dosage: 160 4.5, UNKNOWN FREQUENCY
     Route: 055
     Dates: start: 2009

REACTIONS (2)
  - Drug dose omission [Unknown]
  - Leukocytosis [Unknown]

NARRATIVE: CASE EVENT DATE: 2009
